FAERS Safety Report 15438101 (Version 1)
Quarter: 2018Q3

REPORT INFORMATION
  Report Type: Report from Study
  Country: None (occurrence: US)
  Receive Date: 20180928
  Receipt Date: 20180928
  Transmission Date: 20181010
  Serious: Yes (Other)
  Sender: FDA-Public Use
  Company Number: US-INGENUS PHARMACEUTICALS NJ, LLC-ING201809-000960

PATIENT

DRUGS (1)
  1. CARISOPRODOL, ASPIRIN AND CODEINE PHOSPHATE [Suspect]
     Active Substance: ASPIRIN\CARISOPRODOL\CODEINE PHOSPHATE
     Indication: THROMBOSIS PROPHYLAXIS

REACTIONS (2)
  - Deep vein thrombosis [Unknown]
  - Treatment noncompliance [Unknown]
